FAERS Safety Report 25213163 (Version 1)
Quarter: 2025Q2

REPORT INFORMATION
  Report Type: Spontaneous
  Country: US (occurrence: US)
  Receive Date: 20250418
  Receipt Date: 20250418
  Transmission Date: 20250716
  Serious: Yes (Other)
  Sender: PFIZER
  Company Number: US-PFIZER INC-PV202500042689

PATIENT

DRUGS (1)
  1. NURTEC ODT [Suspect]
     Active Substance: RIMEGEPANT SULFATE
     Dates: start: 20250403, end: 20250407

REACTIONS (6)
  - Suicidal ideation [Unknown]
  - Depression [Unknown]
  - Anxiety [Unknown]
  - Panic attack [Unknown]
  - Feeling abnormal [Unknown]
  - Crying [Unknown]

NARRATIVE: CASE EVENT DATE: 20250405
